FAERS Safety Report 8325266-7 (Version None)
Quarter: 2012Q2

REPORT INFORMATION
  Report Type: 
  Country: None (occurrence: None)
  Receive Date: 20120501
  Receipt Date: 20120416
  Transmission Date: 20120825
  Serious: Yes (Other)
  Sender: FDA-Public Use
  Company Number: US-ROCHE-1064126

PATIENT

DRUGS (3)
  1. VORINOSTAT [Suspect]
     Indication: GLIOBLASTOMA
  2. IRINOTECAN HCL [Suspect]
     Indication: GLIOBLASTOMA
     Route: 042
  3. AVASTIN [Suspect]
     Indication: GLIOBLASTOMA
     Route: 042

REACTIONS (1)
  - MUCOSAL INFLAMMATION [None]
